FAERS Safety Report 8504047-5 (Version None)
Quarter: 2012Q3

REPORT INFORMATION
  Report Type: 
  Country: None (occurrence: None)
  Receive Date: 20120702
  Receipt Date: 20120619
  Transmission Date: 20120928
  Serious: Yes (Other)
  Sender: FDA-Public Use
  Company Number: AUR-APL-2012-02484

PATIENT
  Age: 68 Year
  Sex: Female

DRUGS (7)
  1. ASPIRIN [Concomitant]
  2. CALCICHEW D3 (LEKOVIT CA) [Concomitant]
  3. RISPERIDONE [Suspect]
     Indication: PSYCHOTIC DISORDER
     Dosage: 0.5 MG (0.5 MG, 1 IN 1 D), ORAL; 1.5 MG, DAILY AT NIGHT, ORAL
     Route: 048
     Dates: start: 20120201, end: 20120201
  4. RISPERIDONE [Suspect]
     Indication: PSYCHOTIC DISORDER
     Dosage: 0.5 MG (0.5 MG, 1 IN 1 D), ORAL; 1.5 MG, DAILY AT NIGHT, ORAL
     Route: 048
     Dates: start: 20120403, end: 20120411
  5. MEMANTINE HCL [Suspect]
     Indication: DEMENTIA ALZHEIMER'S TYPE
     Dosage: 10 MG (10 MG, 1 IN 1 D), ORAL
     Route: 048
     Dates: start: 20120106, end: 20120418
  6. SIMVASTATIN [Concomitant]
  7. ALENDRONIC ACID (ALENDRONIC ACID) [Concomitant]

REACTIONS (1)
  - ORTHOSTATIC HYPOTENSION [None]
